FAERS Safety Report 24905452 (Version 1)
Quarter: 2025Q1

REPORT INFORMATION
  Report Type: Report from Study
  Country: US (occurrence: US)
  Receive Date: 20250130
  Receipt Date: 20250130
  Transmission Date: 20250409
  Serious: Yes (Death, Hospitalization, Other)
  Sender: MERCK
  Company Number: US-009507513-2501USA005850

PATIENT
  Sex: Female

DRUGS (16)
  1. WINREVAIR [Suspect]
     Active Substance: SOTATERCEPT-CSRK
     Route: 058
     Dates: start: 2024, end: 20241202
  2. ALBUTEROL SULFATE [Concomitant]
     Active Substance: ALBUTEROL SULFATE
  3. ALLOPURINOL [Concomitant]
     Active Substance: ALLOPURINOL
     Dosage: 2 DOSAGE FORM, QD
     Route: 048
     Dates: start: 20240419
  4. ASPIRIN [Concomitant]
     Active Substance: ASPIRIN
     Dosage: 1 DOSAGE FORM, QD
     Route: 048
     Dates: start: 20190826
  5. ATORVASTATIN [Concomitant]
     Active Substance: ATORVASTATIN
     Route: 048
     Dates: start: 20221117
  6. ESCITALOPRAM [Concomitant]
     Active Substance: ESCITALOPRAM OXALATE
     Dosage: 1 DOSAGE FORM, QD
     Route: 048
     Dates: start: 20201209
  7. FERROUS SULFATE [Concomitant]
     Active Substance: FERROUS SULFATE
     Dosage: 1 DOSAGE FORM, BID
     Route: 048
     Dates: start: 20220201
  8. GABAPENTIN [Concomitant]
     Active Substance: GABAPENTIN
     Dosage: 1 DOSAGE FORM, TID
     Route: 048
     Dates: start: 20210713
  9. MAGNESIUM OXIDE [Concomitant]
     Active Substance: MAGNESIUM OXIDE
     Dosage: 3 DOSAGE FORM, TID
     Route: 048
     Dates: start: 20230209
  10. ONDANSETRON [Concomitant]
     Active Substance: ONDANSETRON
     Dosage: 1 TABLET AS NEEDED
     Route: 060
     Dates: start: 20230511
  11. PANTOPRAZOLE [Concomitant]
     Active Substance: PANTOPRAZOLE
     Dosage: 2 DOSAGE FORM, QD
     Route: 048
     Dates: start: 20221129
  12. PEPCID [Concomitant]
     Active Substance: FAMOTIDINE
     Dosage: 1 DOSAGE FORM, QD
     Route: 048
     Dates: start: 20230712
  13. REMODULIN [Concomitant]
     Active Substance: TREPROSTINIL
     Dates: start: 20201029
  14. SILDENAFIL [Concomitant]
     Active Substance: SILDENAFIL
     Dosage: 1 DOSAGE FORM, TID
     Route: 048
     Dates: start: 20240311
  15. TUMS [Concomitant]
     Active Substance: CALCIUM CARBONATE
     Dosage: 2 DOSAGE FORM, QD
     Route: 048
     Dates: start: 20230712
  16. VITAMIN D+K [Concomitant]
     Dosage: 1 DOSAGE FORM, QD
     Route: 048
     Dates: start: 20230712

REACTIONS (40)
  - Death [Fatal]
  - Haematemesis [Unknown]
  - Oesophageal ulcer haemorrhage [Unknown]
  - Pneumonia [Unknown]
  - Palliative radiation [Unknown]
  - Ventricular tachycardia [Unknown]
  - Loss of consciousness [Unknown]
  - Syncope [Unknown]
  - Anaemia [Unknown]
  - Hepatic cirrhosis [Unknown]
  - Ascites [Unknown]
  - Gastrointestinal haemorrhage [Unknown]
  - Constipation [Unknown]
  - Drug hypersensitivity [Unknown]
  - Hypotension [Unknown]
  - Seasonal allergy [Unknown]
  - Rales [Unknown]
  - Dyspnoea [Unknown]
  - Feeding disorder [Unknown]
  - Cough [Unknown]
  - Weight fluctuation [Unknown]
  - Paraesthesia [Unknown]
  - Oedema [Unknown]
  - Blood albumin decreased [Unknown]
  - Aspartate aminotransferase increased [Unknown]
  - Blood alkaline phosphatase increased [Unknown]
  - Anion gap increased [Unknown]
  - Fatigue [Unknown]
  - Abdominal pain [Unknown]
  - Supraventricular tachycardia [Unknown]
  - Abdominal distension [Unknown]
  - Faeces discoloured [Unknown]
  - Pyrexia [Unknown]
  - Hypoaesthesia [Unknown]
  - Blood magnesium decreased [Unknown]
  - Dizziness [Unknown]
  - Headache [Unknown]
  - Diarrhoea [Unknown]
  - Telangiectasia [Unknown]
  - Platelet count decreased [Unknown]

NARRATIVE: CASE EVENT DATE: 20240101
